FAERS Safety Report 6206587-0 (Version None)
Quarter: 2009Q2

REPORT INFORMATION
  Report Type: 
  Country: None (occurrence: None)
  Receive Date: 20090528
  Receipt Date: 20090522
  Transmission Date: 20091009
  Serious: Yes (Hospitalization)
  Sender: FDA-Public Use
  Company Number: AU-B.I. PHARMACEUTICALS,INC./RIDGEFIELD-2009-AU-00232AU

PATIENT
  Sex: Female

DRUGS (2)
  1. MICARDIS [Suspect]
  2. LITHIUM [Concomitant]

REACTIONS (1)
  - BIPOLAR DISORDER [None]
